FAERS Safety Report 4598737-7 (Version None)
Quarter: 2005Q1

REPORT INFORMATION
  Report Type: 
  Country: None (occurrence: None)
  Receive Date: 20050304
  Receipt Date: 20050222
  Transmission Date: 20050727
  Serious: Yes (Other)
  Sender: FDA-Public Use
  Company Number: NL-GLAXOSMITHKLINE-B0372864A

PATIENT
  Age: 58 Year
  Sex: Female

DRUGS (1)
  1. FLUTICASONE PROPIONATE [Suspect]
     Indication: HYPERSENSITIVITY
     Dates: start: 20000101, end: 20050101

REACTIONS (3)
  - ABNORMAL SENSATION IN EYE [None]
  - CONJUNCTIVITIS [None]
  - VISUAL DISTURBANCE [None]
